FAERS Safety Report 19274175 (Version 3)
Quarter: 2021Q2

REPORT INFORMATION
  Report Type: Spontaneous
  Country: JP (occurrence: JP)
  Receive Date: 20210519
  Receipt Date: 20210611
  Transmission Date: 20210717
  Serious: Yes (Death, Hospitalization, Other)
  Sender: FDA-Public Use
  Company Number: JP-009507513-2105JPN000605J

PATIENT
  Age: 67 Year
  Sex: Male

DRUGS (1)
  1. KEYTRUDA [Suspect]
     Active Substance: PEMBROLIZUMAB
     Indication: LUNG SQUAMOUS CELL CARCINOMA STAGE IV
     Dosage: UNK
     Route: 041

REACTIONS (2)
  - Pneumonia cytomegaloviral [Fatal]
  - Pneumonia [Unknown]
